FAERS Safety Report 14286708 (Version 2)
Quarter: 2018Q1

REPORT INFORMATION
  Report Type: Report from Study
  Country: US (occurrence: US)
  Receive Date: 20171214
  Receipt Date: 20180110
  Transmission Date: 20180509
  Serious: Yes (Death, Other)
  Sender: FDA-Public Use
  Company Number: US-AMGEN-USASL2017184755

PATIENT
  Age: 79 Year
  Sex: Male

DRUGS (3)
  1. ZYTIGA [Concomitant]
     Active Substance: ABIRATERONE ACETATE
     Indication: PROSTATE CANCER
     Dosage: 1000 G, QD
     Dates: start: 201703
  2. NEULASTA [Suspect]
     Active Substance: PEGFILGRASTIM
     Indication: PRODUCT USED FOR UNKNOWN INDICATION
     Dosage: UNK
     Route: 065
  3. PREDNISONE. [Concomitant]
     Active Substance: PREDNISONE
     Dosage: 5 G, BID
     Dates: start: 201703

REACTIONS (10)
  - Lymphadenopathy [Unknown]
  - Death [Fatal]
  - Metastases to liver [Unknown]
  - Dysuria [Unknown]
  - Hydronephrosis [Unknown]
  - Urinary retention [Unknown]
  - Hydroureter [Unknown]
  - Retroperitoneal lymphadenopathy [Unknown]
  - Prostatic specific antigen abnormal [Unknown]
  - Adrenal adenoma [Unknown]

NARRATIVE: CASE EVENT DATE: 20161101
